FAERS Safety Report 4640389-1 (Version None)
Quarter: 2005Q2

REPORT INFORMATION
  Report Type: 
  Country: None (occurrence: None)
  Receive Date: 20050419
  Receipt Date: 20050404
  Transmission Date: 20051028
  Serious: Yes (Life-Threatening, Hospitalization, Disabling)
  Sender: FDA-Public Use
  Company Number: PIR #0411055

PATIENT
  Age: 57 Year
  Sex: Female
  Weight: 74.8435 kg

DRUGS (1)
  1. HESPAN (6% HETASTARCH IN 0.9% SODIUM CHLORIDE INJ) IN EXCEL BAG [Suspect]
     Dosage: 1 LITER IV
     Route: 042
     Dates: start: 20000104

REACTIONS (14)
  - ABDOMINAL PAIN UPPER [None]
  - ANAEMIA [None]
  - BRADYCARDIA [None]
  - CHEST PAIN [None]
  - DIZZINESS [None]
  - DYSPNOEA [None]
  - GASTRIC DISORDER [None]
  - HAEMORRHAGE INTRACRANIAL [None]
  - HYPERTENSION [None]
  - NEUROPATHY PERIPHERAL [None]
  - OEDEMA [None]
  - PERIPHERAL VASCULAR DISORDER [None]
  - PRURITUS [None]
  - TRANSIENT ISCHAEMIC ATTACK [None]
